FAERS Safety Report 12177147 (Version 2)
Quarter: 2016Q2

REPORT INFORMATION
  Report Type: Report from Study
  Country: AU (occurrence: AU)
  Receive Date: 20160315
  Receipt Date: 20160504
  Transmission Date: 20160815
  Serious: Yes (Disabling, Other)
  Sender: FDA-Public Use
  Company Number: AU-AMGEN-AUSSL2016030372

PATIENT
  Age: 62 Year
  Sex: Female
  Weight: 47 kg

DRUGS (1)
  1. PROLIA [Suspect]
     Active Substance: DENOSUMAB
     Indication: OSTEOPOROSIS
     Dosage: UNK
     Route: 065
     Dates: start: 201312

REACTIONS (1)
  - Osteonecrosis of jaw [Recovered/Resolved with Sequelae]

NARRATIVE: CASE EVENT DATE: 201312
